FAERS Safety Report 10025457 (Version 2)
Quarter: 2014Q2

REPORT INFORMATION
  Report Type: Spontaneous
  Country: DE (occurrence: DE)
  Receive Date: 20140320
  Receipt Date: 20140417
  Transmission Date: 20141212
  Serious: Yes (Other)
  Sender: FDA-Public Use
  Company Number: DE-JNJFOC-20140310604

PATIENT
  Age: 38 Year
  Sex: Female

DRUGS (5)
  1. SIMPONI [Suspect]
     Indication: COLITIS ULCERATIVE
     Route: 058
     Dates: start: 20140130, end: 20140130
  2. SIMPONI [Suspect]
     Indication: COLITIS ULCERATIVE
     Route: 058
     Dates: start: 20140116, end: 20140116
  3. FERROSANOL [Concomitant]
     Route: 065
  4. OMEPRAZOLE [Concomitant]
     Route: 065
  5. PREDNIHEXAL [Concomitant]
     Route: 065

REACTIONS (1)
  - Pancreatitis relapsing [Recovered/Resolved]
